FAERS Safety Report 21423040 (Version 1)
Quarter: 2022Q4

REPORT INFORMATION
  Report Type: Spontaneous
  Country: ES (occurrence: ES)
  Receive Date: 20221007
  Receipt Date: 20221007
  Transmission Date: 20230112
  Serious: Yes (Life-Threatening, Hospitalization)
  Sender: FDA-Public Use
  Company Number: None

PATIENT
  Age: 62 Year
  Sex: Female

DRUGS (4)
  1. ARIPIPRAZOLE [Suspect]
     Active Substance: ARIPIPRAZOLE
     Indication: Obsessive-compulsive disorder
     Dosage: UNIT DOSE 5MG, FREQ TIME 1 DAY, DURATION 3636 DAYS, ARIPIPRAZOL (2933A)
     Dates: start: 20120731, end: 20220714
  2. WAKIX [Suspect]
     Active Substance: PITOLISANT HYDROCHLORIDE
     Indication: Hypersomnia
     Dosage: UNIT DOSE: 4.5 MG, FREQ TIME 1 DAY, DURATION 22 DAYS,
     Dates: start: 20220623, end: 20220714
  3. FLUVOXAMINE MALEATE [Concomitant]
     Active Substance: FLUVOXAMINE MALEATE
     Indication: Obsessive-compulsive disorder
     Dosage: UNIT DOSE: 300 MG, STRENGTH: 100 MG, FREQ TIME 1 DAY
     Dates: start: 201906
  4. DIAZEPAM [Concomitant]
     Active Substance: DIAZEPAM
     Indication: Obsessive-compulsive disorder
     Dosage: DIAZEPAM (730A), UNIT DOSE 5MG, FREQ TIME 1 DAY
     Dates: start: 20200518

REACTIONS (1)
  - Pulmonary embolism [Recovered/Resolved]

NARRATIVE: CASE EVENT DATE: 20220707
